FAERS Safety Report 6941882-9 (Version None)
Quarter: 2010Q3

REPORT INFORMATION
  Report Type: 
  Country: None (occurrence: None)
  Receive Date: 20100826
  Receipt Date: 20100815
  Transmission Date: 20110219
  Serious: No
  Sender: FDA-Public Use
  Company Number: US-PFIZER INC-2010102367

PATIENT
  Sex: Male
  Weight: 70 kg

DRUGS (3)
  1. DILANTIN [Suspect]
     Indication: CONVULSION
     Dosage: 300 MG, DAILY
     Route: 048
     Dates: start: 20100722, end: 20100729
  2. LISINOPRIL [Concomitant]
     Indication: HYPERTENSION
     Dosage: 25 MG, DAILY
  3. LIPITOR [Concomitant]
     Indication: BLOOD CHOLESTEROL INCREASED
     Dosage: 20 MG, DAILY
     Route: 048

REACTIONS (2)
  - PRURITUS [None]
  - RASH [None]
